FAERS Safety Report 8528509 (Version 7)
Quarter: 2013Q1

REPORT INFORMATION
  Report Type: Spontaneous
  Country: BR (occurrence: BR)
  Receive Date: 20120424
  Receipt Date: 20130114
  Transmission Date: 20140127
  Serious: Yes (Hospitalization, Other)
  Sender: FDA-Public Use
  Company Number: BR-ROCHE-1062362

PATIENT
  Sex: Female

DRUGS (16)
  1. XOLAIR [Suspect]
     Indication: ASTHMA
     Route: 058
     Dates: start: 201112
  2. XOLAIR [Suspect]
     Route: 058
     Dates: start: 201112
  3. DAXAS [Concomitant]
  4. BAMIFIX [Concomitant]
     Route: 065
  5. PREDNISONE [Concomitant]
     Route: 065
  6. ALENIA (BRAZIL) [Concomitant]
     Dosage: 12/400 UG
     Route: 065
  7. BUDESONIDE [Concomitant]
     Route: 065
  8. CAMPHOR/METHYL SALICYLATE [Concomitant]
     Route: 065
  9. CALCIUM CARBONATE [Concomitant]
     Route: 065
  10. ENALAPRIL [Concomitant]
     Route: 065
  11. METFORMIN [Concomitant]
     Route: 065
  12. SIMVASTATIN [Concomitant]
     Route: 065
  13. ROFLUMILAST [Concomitant]
     Route: 065
  14. FLUOXETIN [Concomitant]
     Route: 065
  15. INSULIN [Concomitant]
     Route: 065
  16. FORTALIS [Concomitant]

REACTIONS (11)
  - Pneumonia [Recovered/Resolved]
  - Blood pressure decreased [Recovered/Resolved]
  - Asthma [Recovering/Resolving]
  - Malaise [Recovering/Resolving]
  - Dyspnoea [Recovering/Resolving]
  - Wheezing [Recovering/Resolving]
  - Cough [Recovering/Resolving]
  - Bronchial disorder [Unknown]
  - Septic shock [Unknown]
  - Lung infection [Unknown]
  - Drug ineffective [Unknown]
